FAERS Safety Report 24767321 (Version 1)
Quarter: 2024Q4

REPORT INFORMATION
  Report Type: Spontaneous
  Country: US (occurrence: None)
  Receive Date: 20241220
  Receipt Date: 20241220
  Transmission Date: 20250115
  Serious: Yes (Other)
  Sender: Public
  Company Number: None

PATIENT
  Age: 76 Year
  Sex: Female

DRUGS (1)
  1. PROLIA [Suspect]
     Active Substance: DENOSUMAB
     Indication: Osteoporosis
     Dosage: OTHER QUANTITY : 1 INJECTION(S);?OTHER FREQUENCY : INJECTION;?
     Route: 058
     Dates: start: 20240808, end: 20240809

REACTIONS (4)
  - Dry skin [None]
  - Pruritus [None]
  - Drug ineffective [None]
  - Product use complaint [None]

NARRATIVE: CASE EVENT DATE: 20240808
